FAERS Safety Report 9845251 (Version 1)
Quarter: 2014Q1

REPORT INFORMATION
  Report Type: Spontaneous
  Country: CA (occurrence: CA)
  Receive Date: 20140127
  Receipt Date: 20140127
  Transmission Date: 20141002
  Serious: Yes (Hospitalization)
  Sender: FDA-Public Use
  Company Number: CA-ASTELLAS-2014US000627

PATIENT
  Age: 63 Year
  Sex: Female

DRUGS (1)
  1. ADVAGRAF [Suspect]
     Indication: RENAL TRANSPLANT
     Dosage: 1.5 MG, UNKNOWN/D
     Route: 048

REACTIONS (3)
  - Spinal fracture [Unknown]
  - Pelvic fracture [Unknown]
  - Fall [Unknown]
